FAERS Safety Report 8254640-2 (Version None)
Quarter: 2012Q2

REPORT INFORMATION
  Report Type: 
  Country: None (occurrence: None)
  Receive Date: 20120403
  Receipt Date: 20120320
  Transmission Date: 20120825
  Serious: Yes (Other)
  Sender: FDA-Public Use
  Company Number: AR-AMGEN-ARGSP2011025647

PATIENT
  Age: 58 Year
  Sex: Female
  Weight: 68 kg

DRUGS (5)
  1. ENBREL [Suspect]
     Indication: RHEUMATOID ARTHRITIS
     Dosage: 50 MG, WEEKLY
     Route: 058
     Dates: start: 20101105, end: 20110203
  2. METHOTREXATE SODIUM [Concomitant]
     Dosage: 15 MG, 1X/DAY
  3. MELOXICAM [Concomitant]
     Dosage: UNK
  4. PAROXETINE [Concomitant]
     Dosage: 20 MG, 1X/DAY
  5. MEPREDNISONE [Concomitant]
     Dosage: UNK

REACTIONS (1)
  - MYOCARDIAL INFARCTION [None]
